FAERS Safety Report 4424794-4 (Version None)
Quarter: 2004Q3

REPORT INFORMATION
  Report Type: 
  Country: None (occurrence: None)
  Receive Date: 20040809
  Receipt Date: 20040728
  Transmission Date: 20050211
  Serious: Yes (Hospitalization)
  Sender: FDA-Public Use
  Company Number: DE-JNJFOC-20040800090

PATIENT
  Age: 88 Year
  Sex: Male

DRUGS (12)
  1. LEVOFLOXACIN [Suspect]
     Indication: PNEUMONIA
     Dosage: INTRAVENOUS
     Route: 042
     Dates: start: 20030124, end: 20030128
  2. LEVOFLOXACIN [Suspect]
     Indication: PNEUMONIA
     Dosage: ORAL
     Route: 048
     Dates: start: 20030129, end: 20030207
  3. FLOMAX [Concomitant]
  4. PRILOSEC [Concomitant]
  5. AMBIEN [Concomitant]
  6. MULTIVITAMIN (MULTIVITAMINS) [Concomitant]
  7. PROTONIX [Concomitant]
  8. DILANTIN [Concomitant]
  9. DILANTIN [Concomitant]
  10. K-DUR 10 [Concomitant]
  11. CORTROSYN (TETRACOSACTIDE) [Concomitant]
  12. FUROSEMIDE [Concomitant]

REACTIONS (10)
  - CAROTID ENDARTERECTOMY [None]
  - CORONARY ARTERY DISEASE [None]
  - DYSPHAGIA [None]
  - GASTRIC POLYPS [None]
  - GASTRITIS [None]
  - MYOCARDIAL INFARCTION [None]
  - OESOPHAGEAL STENOSIS [None]
  - PERICARDIAL EFFUSION [None]
  - PULMONARY OEDEMA [None]
  - VENTRICULAR DYSFUNCTION [None]
